FAERS Safety Report 5327420-5 (Version None)
Quarter: 2007Q1

REPORT INFORMATION
  Report Type: 
  Country: None (occurrence: None)
  Receive Date: 20070226
  Receipt Date: 20070109
  Transmission Date: 20070707
  Serious: Yes (Disabling)
  Sender: FDA-Public Use
  Company Number: WAES 0701USA01009

PATIENT
  Age: 70 Year
  Sex: Female

DRUGS (1)
  1. VYTORIN [Suspect]
     Indication: BLOOD CHOLESTEROL
     Dosage: PO
     Route: 048
     Dates: start: 20061222, end: 20070108

REACTIONS (3)
  - DRUG ADMINISTRATION ERROR [None]
  - GASTROINTESTINAL DISORDER [None]
  - JAUNDICE [None]
